FAERS Safety Report 24155205 (Version 2)
Quarter: 2024Q3

REPORT INFORMATION
  Report Type: Report from Study
  Country: EG (occurrence: EG)
  Receive Date: 20240731
  Receipt Date: 20240902
  Transmission Date: 20241017
  Serious: Yes (Life-Threatening, Hospitalization, Other)
  Sender: NOVARTIS
  Company Number: EG-002147023-NVSC2024EG154437

PATIENT
  Age: 50 Year
  Sex: Male
  Weight: 80 kg

DRUGS (3)
  1. ENTRESTO [Suspect]
     Active Substance: SACUBITRIL\VALSARTAN
     Indication: Cardiac failure
     Dosage: 100 MG, BID (STRENGTH 100 MG)
     Route: 048
     Dates: start: 202305, end: 202406
  2. ENTRESTO [Suspect]
     Active Substance: SACUBITRIL\VALSARTAN
     Dosage: 200 MG, BID (STRENGTH 200 MG)
     Route: 048
     Dates: start: 20240601, end: 20240615
  3. ENTRESTO [Suspect]
     Active Substance: SACUBITRIL\VALSARTAN
     Dosage: 200 MG, BID (STRENGTH 200 MG) (1/2 TAB ENTRESTO 200MG TWICE DAILY)
     Route: 048
     Dates: start: 20240615

REACTIONS (9)
  - Coma [Recovered/Resolved]
  - Tremor [Recovered/Resolved]
  - Blood pressure decreased [Recovering/Resolving]
  - Heart rate irregular [Recovered/Resolved]
  - Blood calcium decreased [Recovering/Resolving]
  - Blood potassium decreased [Recovering/Resolving]
  - Heart rate irregular [Recovering/Resolving]
  - Wrong technique in product usage process [Not Recovered/Not Resolved]
  - Hypoaesthesia [Recovering/Resolving]

NARRATIVE: CASE EVENT DATE: 20240606
